FAERS Safety Report 8987188 (Version 1)
Quarter: 2012Q4

REPORT INFORMATION
  Report Type: 
  Country: US (occurrence: US)
  Receive Date: 20121227
  Receipt Date: 20121227
  Transmission Date: 20130627
  Serious: No
  Sender: FDA-Public Use
  Company Number: US-BAYER-2012-134814

PATIENT
  Age: 45 Year
  Sex: Female

DRUGS (1)
  1. CLIMARA [Suspect]
     Indication: HOT FLASHES
     Dosage: 0.1mg/day, one patch weekly
     Route: 062
     Dates: start: 2010

REACTIONS (9)
  - Hot flush [Recovered/Resolved]
  - Back pain [Recovered/Resolved]
  - Arthralgia [Recovered/Resolved]
  - Drug ineffective [None]
  - Hot flush [Not Recovered/Not Resolved]
  - Back pain [Not Recovered/Not Resolved]
  - Arthralgia [Not Recovered/Not Resolved]
  - Drug ineffective [None]
  - Product adhesion issue [None]
